FAERS Safety Report 10216384 (Version 1)
Quarter: 2014Q2

REPORT INFORMATION
  Report Type: Report from Study
  Country: US (occurrence: US)
  Receive Date: 20140604
  Receipt Date: 20140604
  Transmission Date: 20141212
  Serious: Yes (Other)
  Sender: FDA-Public Use
  Company Number: PHHO2014US007805

PATIENT
  Age: 75 Year
  Sex: Female
  Weight: 67.1 kg

DRUGS (6)
  1. TASIGNA [Suspect]
     Indication: CHRONIC MYELOID LEUKAEMIA
     Dosage: 300 MG, BID
     Route: 048
     Dates: start: 20140203, end: 20140527
  2. CEFDINIR [Concomitant]
     Indication: SINUSITIS
     Dosage: 300 MG, BID
     Route: 048
     Dates: start: 20140522
  3. NASONEX [Concomitant]
     Indication: SINUSITIS
     Dosage: 50 UG, PRN (ACT)
     Dates: start: 20140522
  4. ASPIRIN [Concomitant]
     Indication: PROPHYLAXIS
     Dosage: 81 MG, QD
     Route: 048
     Dates: start: 20090331
  5. NAPROXEN [Concomitant]
     Indication: OSTEOARTHRITIS
     Dosage: 220 MG, PRN
     Dates: start: 20131212
  6. MELOXICAM [Concomitant]
     Indication: OSTEOARTHRITIS
     Dosage: 15 MG, QD
     Route: 048
     Dates: start: 20131024

REACTIONS (1)
  - Transient ischaemic attack [Recovered/Resolved]
